FAERS Safety Report 10563493 (Version 2)
Quarter: 2014Q4

REPORT INFORMATION
  Report Type: Spontaneous
  Country: RO (occurrence: RO)
  Receive Date: 20141104
  Receipt Date: 20141217
  Transmission Date: 20150529
  Serious: Yes (Hospitalization)
  Sender: FDA-Public Use
  Company Number: RO-PFIZER INC-2014303365

PATIENT
  Age: 69 Year
  Sex: Male

DRUGS (1)
  1. SUNITINIB MALATE [Suspect]
     Active Substance: SUNITINIB MALATE
     Indication: CLEAR CELL RENAL CELL CARCINOMA
     Dosage: 50 MG, 1X/DAY, 4 WEEKS TREATMENT WITH 2 WEEKS PAUSE
     Dates: start: 201203

REACTIONS (7)
  - Oedema [Unknown]
  - Yellow skin [Unknown]
  - Asthenia [Unknown]
  - Haemoglobin decreased [Unknown]
  - Ejection fraction decreased [Unknown]
  - Ventricular extrasystoles [Unknown]
  - Bradycardia [Unknown]

NARRATIVE: CASE EVENT DATE: 201211
